FAERS Safety Report 6645182-6 (Version None)
Quarter: 2010Q1

REPORT INFORMATION
  Report Type: 
  Country: None (occurrence: None)
  Receive Date: 20100308
  Receipt Date: 20100222
  Transmission Date: 20100710
  Serious: No
  Sender: FDA-Public Use
  Company Number: 2010-00282

PATIENT
  Age: 29 Year
  Sex: Male
  Weight: 77.1115 kg

DRUGS (1)
  1. ZICAM COLD REMEDY NASAL GEL [Suspect]
     Dosage: ONE DOSE - ONE DOSE
     Dates: start: 20100215, end: 20100215

REACTIONS (2)
  - AGEUSIA [None]
  - ANOSMIA [None]
